FAERS Safety Report 25885050 (Version 1)
Quarter: 2025Q4

REPORT INFORMATION
  Report Type: Spontaneous
  Country: US (occurrence: None)
  Receive Date: 20251003
  Receipt Date: 20251003
  Transmission Date: 20260117
  Serious: No
  Sender: FDA-CTU
  Company Number: None

PATIENT
  Age: 82 Year
  Sex: Female

DRUGS (1)
  1. CALQUENCE [Suspect]
     Active Substance: ACALABRUTINIB
     Indication: Chronic lymphocytic leukaemia
     Dosage: FREQUENCY : DAILY;?
     Route: 048
     Dates: start: 20240717, end: 20250424

REACTIONS (5)
  - Mental status changes [None]
  - Presyncope [None]
  - Therapy interrupted [None]
  - Confusional state [None]
  - Erythema [None]

NARRATIVE: CASE EVENT DATE: 20250501
